FAERS Safety Report 6320765-1 (Version None)
Quarter: 2009Q3

REPORT INFORMATION
  Report Type: 
  Country: None (occurrence: None)
  Receive Date: 20090822
  Receipt Date: 20081217
  Transmission Date: 20100115
  Serious: No
  Sender: FDA-Public Use
  Company Number: US-ABBOTT-08P-163-0491038-00

PATIENT
  Sex: Female

DRUGS (3)
  1. NIASPAN [Suspect]
     Indication: BLOOD TRIGLYCERIDES INCREASED
     Route: 048
     Dates: start: 20081202
  2. NIASPAN [Suspect]
     Indication: HIGH DENSITY LIPOPROTEIN DECREASED
  3. IBANDRONATE SODIUM [Concomitant]
     Indication: DRUG USE FOR UNKNOWN INDICATION

REACTIONS (6)
  - ASTHENIA [None]
  - HEART RATE INCREASED [None]
  - HYPERHIDROSIS [None]
  - LISTLESS [None]
  - NAUSEA [None]
  - TINNITUS [None]
